FAERS Safety Report 8997767 (Version 4)
Quarter: 2013Q3

REPORT INFORMATION
  Report Type: Spontaneous
  Country: US (occurrence: US)
  Receive Date: 20130104
  Receipt Date: 20130716
  Transmission Date: 20140515
  Serious: Yes (Hospitalization, Disabling, Other)
  Sender: FDA-Public Use
  Company Number: US-009507513-1212USA010553

PATIENT
  Sex: Female
  Weight: 54.15 kg

DRUGS (7)
  1. FOSAMAX [Suspect]
     Indication: OSTEOPENIA
     Dosage: 70 MG, QW
     Route: 048
     Dates: start: 20010403, end: 20080525
  2. FOSAMAX [Suspect]
     Indication: OSTEOPOROSIS PROPHYLAXIS
  3. FOSAMAX [Suspect]
     Indication: OSTEOPENIA
     Dosage: 70 MG, QW
     Route: 048
     Dates: start: 20080501, end: 201112
  4. FOSAMAX [Suspect]
     Indication: OSTEOPOROSIS PROPHYLAXIS
  5. SYNTHROID [Concomitant]
     Indication: HYPOTHYROIDISM
     Dosage: 0.025-0.088 MG, QD
     Route: 048
     Dates: start: 1998
  6. BENAZEPRIL HYDROCHLORIDE [Concomitant]
     Indication: HYPERTENSION
     Dosage: 20 MG, QD
     Route: 048
     Dates: start: 200809
  7. BENAZEPRIL HYDROCHLORIDE [Concomitant]
     Indication: HYPERTENSION

REACTIONS (21)
  - Intramedullary rod insertion [Unknown]
  - Femur fracture [Not Recovered/Not Resolved]
  - Radius fracture [Unknown]
  - Ulna fracture [Unknown]
  - Anaemia postoperative [Recovering/Resolving]
  - Thrombocytopenia [Recovering/Resolving]
  - Jaw operation [Unknown]
  - Osteoporosis [Not Recovered/Not Resolved]
  - Stress fracture [Not Recovered/Not Resolved]
  - Femur fracture [Not Recovered/Not Resolved]
  - Low turnover osteopathy [Not Recovered/Not Resolved]
  - Uterine leiomyoma [Unknown]
  - Cardiomegaly [Unknown]
  - Rib fracture [Unknown]
  - Large intestine polyp [Unknown]
  - Lip dry [Unknown]
  - Insomnia [Unknown]
  - Body mass index decreased [Unknown]
  - Fall [Unknown]
  - Constipation [Unknown]
  - Flatulence [Unknown]
